FAERS Safety Report 6215988-6 (Version None)
Quarter: 2009Q2

REPORT INFORMATION
  Report Type: 
  Country: None (occurrence: None)
  Receive Date: 20090605
  Receipt Date: 20090603
  Transmission Date: 20091009
  Serious: Yes (Hospitalization)
  Sender: FDA-Public Use
  Company Number: JP-BRISTOL-MYERS SQUIBB COMPANY-14628739

PATIENT
  Age: 79 Year
  Sex: Male
  Weight: 45 kg

DRUGS (7)
  1. ERBITUX [Suspect]
     Indication: COLON CANCER
     Dosage: 20JAN09:250 MG, 1 IN 1 WK; RECENT INFUSION: 09MAR09 (250 MG, 1/1 WK) TOTAL INFUSIONS: 7.
     Route: 042
     Dates: start: 20090113, end: 20090113
  2. IRINOTECAN HCL [Suspect]
     Indication: COLON CANCER
     Dosage: TOTAL INFUSIONS: 4. RECENT INFUSION: 09MAR09,
     Route: 042
     Dates: start: 20090113
  3. DIPHENHYDRAMINE HCL [Concomitant]
     Indication: PREMEDICATION
     Dosage: TABLET.13JAN2009, 20JAN2009
     Route: 048
     Dates: start: 20090113
  4. DEXAMETHASONE [Concomitant]
     Indication: PREMEDICATION
     Dosage: EVERY TIME BEFORE  ERBITUX INFUSION
     Route: 041
     Dates: start: 20090113
  5. GRANISETRON HCL [Concomitant]
     Indication: ANTIEMETIC SUPPORTIVE CARE
     Route: 042
  6. SILECE [Concomitant]
     Indication: INSOMNIA
     Dosage: TABLET
     Route: 048
  7. MAGMITT [Concomitant]
     Indication: CONSTIPATION
     Dosage: TABLET.
     Route: 048

REACTIONS (4)
  - ANOREXIA [None]
  - DIARRHOEA [None]
  - DRUG INEFFECTIVE [None]
  - PAIN [None]
